FAERS Safety Report 5888270-4 (Version None)
Quarter: 2008Q3

REPORT INFORMATION
  Report Type: 
  Country: None (occurrence: None)
  Receive Date: 20080918
  Receipt Date: 20080916
  Transmission Date: 20090109
  Serious: Yes (Death)
  Sender: FDA-Public Use
  Company Number: CH-ASTRAZENECA-2008PK02044

PATIENT
  Age: 47 Year
  Sex: Female

DRUGS (11)
  1. SEROQUEL [Suspect]
     Route: 048
     Dates: start: 20080205, end: 20080512
  2. SEROQUEL [Suspect]
     Route: 048
     Dates: start: 20080519, end: 20080528
  3. SEROQUEL [Suspect]
     Route: 048
     Dates: start: 20080528, end: 20080604
  4. SEROQUEL [Suspect]
     Route: 048
     Dates: start: 20080604, end: 20080613
  5. SEROQUEL [Suspect]
     Route: 048
     Dates: start: 20080613, end: 20080625
  6. SEROQUEL [Suspect]
     Route: 048
     Dates: start: 20080625, end: 20080716
  7. SEROQUEL [Suspect]
     Route: 048
     Dates: start: 20080716, end: 20080725
  8. FLUANXOL [Suspect]
     Route: 048
     Dates: start: 20080620, end: 20080625
  9. FLUANXOL [Suspect]
     Route: 048
     Dates: start: 20080625, end: 20080705
  10. FLUANXOL [Suspect]
     Route: 048
     Dates: start: 20080705, end: 20080725
  11. TEMESTA [Concomitant]
     Route: 048
     Dates: start: 20080609, end: 20080725

REACTIONS (1)
  - DEATH [None]
